FAERS Safety Report 10264278 (Version 2)
Quarter: 2014Q3

REPORT INFORMATION
  Report Type: Spontaneous
  Country: US (occurrence: US)
  Receive Date: 20140627
  Receipt Date: 20140702
  Transmission Date: 20150326
  Serious: Yes (Other)
  Sender: FDA-Public Use
  Company Number: CHPA2014US008387

PATIENT
  Age: 56 Year
  Sex: Female

DRUGS (8)
  1. VOLTAREN [Suspect]
     Active Substance: DICLOFENAC SODIUM
     Indication: ARTHRITIS
     Dosage: 4 G, NO MORE THAN 3 TIMES A DAY
     Route: 061
     Dates: end: 20140618
  2. VOLTAREN [Suspect]
     Active Substance: DICLOFENAC SODIUM
     Indication: UNDERDOSE
  3. IBUPROFEN. [Suspect]
     Active Substance: IBUPROFEN
     Indication: ARTHRITIS
     Dosage: 800 MG, UNK
     Dates: end: 2012
  4. VOLTAREN [Suspect]
     Active Substance: DICLOFENAC SODIUM
     Indication: OFF LABEL USE
  5. VOLTAREN [Suspect]
     Active Substance: DICLOFENAC SODIUM
     Indication: MUSCLE SPASMS
  6. VOLTAREN [Suspect]
     Active Substance: DICLOFENAC SODIUM
     Indication: OFF LABEL USE
  7. SOMA [Concomitant]
     Active Substance: CARISOPRODOL
     Indication: MUSCLE RELAXANT THERAPY
     Dosage: UNK
  8. DICLOFENAC [Suspect]
     Active Substance: DICLOFENAC
     Indication: ARTHRITIS
     Dosage: 800 MG, UNK
     Route: 048

REACTIONS (5)
  - Diarrhoea [Recovered/Resolved]
  - Coeliac disease [Not Recovered/Not Resolved]
  - Drug administered at inappropriate site [Unknown]
  - Expired product administered [Unknown]
  - Constipation [Recovered/Resolved]

NARRATIVE: CASE EVENT DATE: 201208
